FAERS Safety Report 7927429-9 (Version None)
Quarter: 2011Q4

REPORT INFORMATION
  Report Type: 
  Country: None (occurrence: None)
  Receive Date: 20111118
  Receipt Date: 20111115
  Transmission Date: 20120403
  Serious: Yes (Hospitalization)
  Sender: FDA-Public Use
  Company Number: PHHY2011NL88769

PATIENT
  Sex: Male

DRUGS (8)
  1. CARBASALATE CALCIUM [Concomitant]
  2. ADALAT [Concomitant]
  3. ACETYLCYSTEINE [Concomitant]
  4. ZOMETA [Suspect]
     Indication: LUNG ADENOCARCINOMA METASTATIC
     Dosage: 4MG/5ML
     Route: 042
     Dates: start: 20111004
  5. ISOSORB [Concomitant]
  6. PERINDOPRIL ERBUMINE [Concomitant]
  7. FUROSEMIDE [Concomitant]
  8. SIMBICORT TURBUHALER [Concomitant]

REACTIONS (6)
  - BONE PAIN [None]
  - PYREXIA [None]
  - PNEUMONIA [None]
  - FATIGUE [None]
  - DYSPNOEA [None]
  - MALAISE [None]
